FAERS Safety Report 5448367-X (Version None)
Quarter: 2007Q3

REPORT INFORMATION
  Report Type: 
  Country: None (occurrence: None)
  Receive Date: 20070911
  Receipt Date: 20070829
  Transmission Date: 20080115
  Serious: Yes (Hospitalization)
  Sender: FDA-Public Use
  Company Number: US-TYCO HEALTHCARE/MALLINCKRODT-T200700951

PATIENT

DRUGS (1)
  1. METHADOSE [Suspect]
     Route: 048
     Dates: start: 20061030

REACTIONS (2)
  - LOSS OF CONSCIOUSNESS [None]
  - RESPIRATORY DISTRESS [None]
